FAERS Safety Report 14571296 (Version 3)
Quarter: 2019Q1

REPORT INFORMATION
  Report Type: Spontaneous
  Country: US (occurrence: US)
  Receive Date: 20180226
  Receipt Date: 20190226
  Transmission Date: 20190417
  Serious: Yes (Hospitalization)
  Sender: FDA-Public Use
  Company Number: US-CELGENEUS-USA-20180208047

PATIENT
  Age: 57 Year
  Sex: Female
  Weight: 47.22 kg

DRUGS (6)
  1. GABAPENTIN. [Concomitant]
     Active Substance: GABAPENTIN
     Indication: NEURALGIA
     Route: 065
  2. HUMIRA [Suspect]
     Active Substance: ADALIMUMAB
     Indication: PSORIATIC ARTHROPATHY
     Dosage: .8 MILLILITER
     Route: 058
     Dates: start: 2017, end: 201811
  3. HUMIRA [Suspect]
     Active Substance: ADALIMUMAB
     Indication: PSORIASIS
  4. OTEZLA [Suspect]
     Active Substance: APREMILAST
     Indication: PSORIATIC ARTHROPATHY
     Route: 048
  5. ALPRAZOLAM. [Concomitant]
     Active Substance: ALPRAZOLAM
     Indication: ANXIETY
     Route: 065
  6. PERCOCET [Concomitant]
     Active Substance: ACETAMINOPHEN\OXYCODONE HYDROCHLORIDE
     Indication: PAIN
     Route: 065

REACTIONS (22)
  - Mobility decreased [Not Recovered/Not Resolved]
  - Joint swelling [Recovering/Resolving]
  - Blister [Not Recovered/Not Resolved]
  - Gait disturbance [Recovering/Resolving]
  - Arthralgia [Not Recovered/Not Resolved]
  - Weight decreased [Not Recovered/Not Resolved]
  - Headache [Unknown]
  - Synovial cyst [Unknown]
  - Psoriasis [Unknown]
  - Intentional product misuse [Not Recovered/Not Resolved]
  - Treatment failure [Unknown]
  - Fatigue [Unknown]
  - Ligament rupture [Recovered/Resolved]
  - Meniscus injury [Recovered/Resolved]
  - Pruritus [Not Recovered/Not Resolved]
  - Intervertebral disc protrusion [Unknown]
  - Hypoaesthesia [Not Recovered/Not Resolved]
  - Joint stiffness [Recovering/Resolving]
  - Pain [Recovering/Resolving]
  - Malaise [Unknown]
  - Skin haemorrhage [Unknown]
  - Diarrhoea [Not Recovered/Not Resolved]

NARRATIVE: CASE EVENT DATE: 2018
